FAERS Safety Report 4666946-4 (Version None)
Quarter: 2005Q2

REPORT INFORMATION
  Report Type: 
  Country: None (occurrence: None)
  Receive Date: 20050518
  Receipt Date: 20040728
  Transmission Date: 20051028
  Serious: Yes (Other)
  Sender: FDA-Public Use
  Company Number: 2004206613US

PATIENT
  Age: 20 Year
  Sex: Female
  Weight: 45.4 kg

DRUGS (4)
  1. DEPO-PROVERA [Suspect]
     Indication: CONTRACEPTION
     Dosage: 150 MG, LAST INJECTION; 150 MG, FIRST INJECTION
     Dates: start: 20030212, end: 20030212
  2. DEPO-PROVERA [Suspect]
     Indication: CONTRACEPTION
     Dosage: 150 MG, LAST INJECTION; 150 MG, FIRST INJECTION
     Dates: start: 20031112, end: 20031112
  3. PRENATAL VITAMINS (BIOTIN, RETINOL, VITAMIN D NOS, VITAMIN B NOS) [Concomitant]
  4. CHROMAGEN (STOMACH DESICCATED) [Concomitant]

REACTIONS (1)
  - UNINTENDED PREGNANCY [None]
